FAERS Safety Report 13803116 (Version 4)
Quarter: 2017Q4

REPORT INFORMATION
  Report Type: Spontaneous
  Country: MX (occurrence: MX)
  Receive Date: 20170728
  Receipt Date: 20171002
  Transmission Date: 20180320
  Serious: Yes (Other)
  Sender: FDA-Public Use
  Company Number: MX-ROCHE-1966981

PATIENT
  Age: 71 Year
  Sex: Female

DRUGS (1)
  1. AVASTIN [Suspect]
     Active Substance: BEVACIZUMAB
     Indication: MACULAR DEGENERATION
     Dosage: 0.625 MG/0.1 ML
     Route: 050
     Dates: start: 20170711, end: 20170711

REACTIONS (7)
  - Blindness [Recovering/Resolving]
  - Off label use [Unknown]
  - Suspected counterfeit product [Unknown]
  - Vitritis [Recovering/Resolving]
  - Vision blurred [Recovering/Resolving]
  - Maculopathy [Recovering/Resolving]
  - Intentional product use issue [Unknown]

NARRATIVE: CASE EVENT DATE: 20170714
